FAERS Safety Report 7864784-2 (Version None)
Quarter: 2011Q4

REPORT INFORMATION
  Report Type: 
  Country: None (occurrence: None)
  Receive Date: 20111028
  Receipt Date: 20100903
  Transmission Date: 20120403
  Serious: No
  Sender: FDA-Public Use
  Company Number: US-GLAXOSMITHKLINE-A0721888A

PATIENT
  Age: 60 Year
  Sex: Male
  Weight: 60 kg

DRUGS (8)
  1. CLARINEX [Concomitant]
     Dosage: 1TAB PER DAY
     Route: 048
  2. NASONEX [Concomitant]
     Dosage: 4SPR PER DAY
     Route: 045
  3. MICARDIS [Concomitant]
     Dosage: 10MG PER DAY
     Route: 048
  4. LIPITOR [Concomitant]
     Dosage: 10MG PER DAY
     Route: 048
  5. MULTI-VITAMINS [Concomitant]
  6. CALCIUM CARBONATE [Concomitant]
  7. ADVAIR DISKUS 100/50 [Suspect]
     Indication: ASTHMA
     Dosage: 1PUFF TWICE PER DAY
     Route: 055
     Dates: start: 20080129, end: 20080403
  8. LEVAQUIN [Concomitant]
     Indication: BRONCHITIS
     Dosage: 750MG PER DAY
     Route: 048

REACTIONS (3)
  - PAIN IN EXTREMITY [None]
  - MUSCLE SPASMS [None]
  - MIDDLE INSOMNIA [None]
